FAERS Safety Report 16697994 (Version 2)
Quarter: 2019Q3

REPORT INFORMATION
  Report Type: Spontaneous
  Country: LV (occurrence: LV)
  Receive Date: 20190813
  Receipt Date: 20190819
  Transmission Date: 20191004
  Serious: Yes (Other)
  Sender: FDA-Public Use
  Company Number: LV-GILEAD-2019-0422958

PATIENT
  Age: 57 Year
  Sex: Male

DRUGS (2)
  1. COBICISTAT;DARUNAVIR [Suspect]
     Active Substance: COBICISTAT\DARUNAVIR ETHANOLATE
     Indication: PRODUCT USED FOR UNKNOWN INDICATION
     Dosage: UNK
     Route: 065
     Dates: start: 2016
  2. TRUVADA [Suspect]
     Active Substance: EMTRICITABINE\TENOFOVIR DISOPROXIL FUMARATE
     Indication: HIV INFECTION
     Dosage: UNK
     Route: 065
     Dates: start: 2016

REACTIONS (3)
  - Foot fracture [Unknown]
  - Osteoporosis [Unknown]
  - Foot fracture [Unknown]

NARRATIVE: CASE EVENT DATE: 201801
